FAERS Safety Report 8140655-1 (Version None)
Quarter: 2012Q1

REPORT INFORMATION
  Report Type: 
  Country: None (occurrence: None)
  Receive Date: 20120216
  Receipt Date: 20120207
  Transmission Date: 20120608
  Serious: Yes (Hospitalization, Other)
  Sender: FDA-Public Use
  Company Number: CA-JNJFOC-20120205664

PATIENT
  Sex: Male
  Weight: 78.4 kg

DRUGS (2)
  1. REMICADE [Suspect]
     Route: 042
     Dates: start: 20101112
  2. REMICADE [Suspect]
     Indication: CROHN'S DISEASE
     Route: 042
     Dates: start: 20120203

REACTIONS (1)
  - HIP ARTHROPLASTY [None]
